FAERS Safety Report 16668497 (Version 3)
Quarter: 2019Q4

REPORT INFORMATION
  Report Type: Spontaneous
  Country: IT (occurrence: IT)
  Receive Date: 20190805
  Receipt Date: 20191011
  Transmission Date: 20200122
  Serious: Yes (Other)
  Sender: FDA-Public Use
  Company Number: IT-JNJFOC-20190742216

PATIENT
  Age: 50 Year
  Sex: Male

DRUGS (3)
  1. REMICADE [Suspect]
     Active Substance: INFLIXIMAB
     Route: 042
     Dates: start: 2006
  2. REMICADE [Suspect]
     Active Substance: INFLIXIMAB
     Route: 042
     Dates: end: 2018
  3. REMICADE [Suspect]
     Active Substance: INFLIXIMAB
     Indication: CROHN^S DISEASE
     Route: 042
     Dates: start: 2003, end: 2004

REACTIONS (3)
  - Deep vein thrombosis [Unknown]
  - Acute promyelocytic leukaemia [Recovering/Resolving]
  - Pulmonary embolism [Unknown]

NARRATIVE: CASE EVENT DATE: 201803
